FAERS Safety Report 16661424 (Version 2)
Quarter: 2019Q3

REPORT INFORMATION
  Report Type: Spontaneous
  Country: US (occurrence: US)
  Receive Date: 20190802
  Receipt Date: 20190814
  Transmission Date: 20191004
  Serious: No
  Sender: FDA-Public Use
  Company Number: US-PFIZER INC-2019332693

PATIENT
  Age: 69 Year
  Sex: Female
  Weight: 45.35 kg

DRUGS (1)
  1. LYRICA [Suspect]
     Active Substance: PREGABALIN
     Indication: PAIN
     Dosage: 450 MG, DAILY, (3 A DAY 150 MG)

REACTIONS (2)
  - Feeling abnormal [Recovered/Resolved]
  - Nervousness [Recovered/Resolved]
